FAERS Safety Report 9205795 (Version 1)
Quarter: 2013Q2

REPORT INFORMATION
  Report Type: Spontaneous
  Country: US (occurrence: None)
  Receive Date: 20130401
  Receipt Date: 20130401
  Transmission Date: 20140414
  Serious: Yes (Death)
  Sender: FDA-Public Use
  Company Number: FK201300962

PATIENT
  Age: 57 Year
  Sex: Female
  Weight: 72 kg

DRUGS (5)
  1. GEMCITABINE [Suspect]
     Indication: PANCREATIC CARCINOMA
     Dates: start: 20120906, end: 201302
  2. KREON (PANCREATIN) [Concomitant]
  3. BISOPROLOL (BISOPROLOL) [Concomitant]
  4. TAZOBAC (PIP/TAZO) [Concomitant]
  5. ROCEPHIN (CEFTRIAXONE) [Concomitant]

REACTIONS (6)
  - Cardiac arrest [None]
  - Haemolysis [None]
  - Microangiopathic haemolytic anaemia [None]
  - Renal failure acute [None]
  - Thrombocytopenia [None]
  - Dialysis [None]
